FAERS Safety Report 10018446 (Version 1)
Quarter: 2014Q1

REPORT INFORMATION
  Report Type: Spontaneous
  Country: US (occurrence: None)
  Receive Date: 20140314
  Receipt Date: 20140314
  Transmission Date: 20141002
  Serious: Yes (Life-Threatening, Hospitalization, Disabling, Other)
  Sender: FDA-Public Use
  Company Number: None

PATIENT
  Age: 42 Year
  Sex: Female
  Weight: 57.61 kg

DRUGS (2)
  1. MIRALAX [Suspect]
     Indication: ABDOMINAL PAIN UPPER
     Route: 048
     Dates: start: 20050517, end: 20140313
  2. MIRALAX [Suspect]
     Indication: CONSTIPATION
     Route: 048
     Dates: start: 20050517, end: 20140313

REACTIONS (11)
  - Renal failure [None]
  - Abnormal sensation in eye [None]
  - Hypertension [None]
  - Dysgeusia [None]
  - Rhinorrhoea [None]
  - Vision blurred [None]
  - Mental impairment [None]
  - Tinnitus [None]
  - Pruritus [None]
  - Tremor [None]
  - Blood creatinine increased [None]
